FAERS Safety Report 25711647 (Version 1)
Quarter: 2025Q3

REPORT INFORMATION
  Report Type: Spontaneous
  Country: JP (occurrence: JP)
  Receive Date: 20250821
  Receipt Date: 20250821
  Transmission Date: 20251021
  Serious: Yes (Hospitalization)
  Sender: BIOMARIN
  Company Number: JP-BIOMARINAP-JP-2025-168192

PATIENT
  Sex: Male

DRUGS (1)
  1. VOXZOGO [Suspect]
     Active Substance: VOSORITIDE
     Indication: Osteochondrodysplasia

REACTIONS (3)
  - Gastroenteritis [Unknown]
  - Dehydration [Unknown]
  - Bronchitis [Unknown]

NARRATIVE: CASE EVENT DATE: 20250527
